FAERS Safety Report 21054803 (Version 2)
Quarter: 2022Q3

REPORT INFORMATION
  Report Type: Spontaneous
  Country: ES (occurrence: ES)
  Receive Date: 20220707
  Receipt Date: 20220727
  Transmission Date: 20221027
  Serious: Yes (Death, Other)
  Sender: FDA-Public Use
  Company Number: None

PATIENT
  Age: 70 Year
  Sex: Male

DRUGS (1)
  1. TECARTUS [Suspect]
     Active Substance: BREXUCABTAGENE AUTOLEUCEL
     Indication: Mantle cell lymphoma
     Dosage: 0,4 - 2 X 10E8 CELULAS DISPERSION PARA PERFUSION, 1 BOLSA DE 68 ML
     Route: 065
     Dates: start: 20220506, end: 20220506

REACTIONS (3)
  - Immune effector cell-associated neurotoxicity syndrome [Fatal]
  - Sepsis [Fatal]
  - Cytokine release syndrome [Fatal]

NARRATIVE: CASE EVENT DATE: 20220506
